FAERS Safety Report 7719581-5 (Version None)
Quarter: 2011Q3

REPORT INFORMATION
  Report Type: 
  Country: None (occurrence: None)
  Receive Date: 20110830
  Receipt Date: 20110826
  Transmission Date: 20111222
  Serious: Yes (Hospitalization)
  Sender: FDA-Public Use
  Company Number: US-ABBOTT-10P-163-0799761-00

PATIENT
  Sex: Male
  Weight: 104.42 kg

DRUGS (16)
  1. ANDROGEL [Suspect]
     Route: 062
     Dates: start: 20080101, end: 20090701
  2. ANDROGEL [Suspect]
     Route: 062
     Dates: end: 20100101
  3. ASPIRIN [Concomitant]
     Indication: CARDIAC DISORDER
  4. LIPITOR [Concomitant]
     Indication: BLOOD CHOLESTEROL INCREASED
     Route: 048
     Dates: start: 20090101, end: 20110101
  5. ANDROGEL [Suspect]
     Route: 061
  6. ATIVAN [Concomitant]
     Indication: ANXIETY
  7. ANDROGEL [Suspect]
     Indication: BLOOD TESTOSTERONE DECREASED
     Route: 062
     Dates: start: 20080101, end: 20080101
  8. ANDROGEL [Suspect]
     Route: 062
     Dates: start: 20090701, end: 20090801
  9. ANDROGEL [Suspect]
     Route: 062
     Dates: start: 20100101
  10. ANDROGEL [Suspect]
     Dosage: DAILY DOSE: 5-6.25 GRAMS
     Route: 062
     Dates: start: 20100101
  11. ANDROGEL [Suspect]
     Route: 062
     Dates: start: 20080101, end: 20080101
  12. METOPROLOL TARTRATE [Concomitant]
     Indication: HEART RATE
  13. ANDROGEL [Suspect]
     Route: 062
     Dates: start: 20091001
  14. ANDROGEL [Suspect]
     Route: 061
     Dates: start: 20070101
  15. PRAVASTATIN [Suspect]
     Indication: BLOOD CHOLESTEROL INCREASED
     Dosage: UNKNOWN MANUFACTURER
     Dates: start: 20090101, end: 20110701
  16. METOPROLOL TARTRATE [Concomitant]
     Indication: HYPERTENSION
     Route: 048

REACTIONS (7)
  - NERVOUSNESS [None]
  - MYOCARDIAL INFARCTION [None]
  - MYALGIA [None]
  - MUSCLE DISORDER [None]
  - LIPIDS INCREASED [None]
  - ARTHRALGIA [None]
  - ACNE [None]
